FAERS Safety Report 24034822 (Version 2)
Quarter: 2024Q3

REPORT INFORMATION
  Report Type: Spontaneous
  Country: TW (occurrence: TW)
  Receive Date: 20240701
  Receipt Date: 20240712
  Transmission Date: 20241017
  Serious: Yes (Death, Life-Threatening, Other)
  Sender: MERCK
  Company Number: TW-009507513-2406TWN009471

PATIENT
  Age: 86 Year
  Sex: Male
  Weight: 83.5 kg

DRUGS (1)
  1. DAPTOMYCIN [Suspect]
     Active Substance: DAPTOMYCIN
     Dosage: 500 MILLIGRAM, QD
     Route: 042
     Dates: start: 20240426, end: 20240428

REACTIONS (1)
  - Rhabdomyolysis [Fatal]

NARRATIVE: CASE EVENT DATE: 20240428
